FAERS Safety Report 8355100-0 (Version None)
Quarter: 2012Q2

REPORT INFORMATION
  Report Type: 
  Country: None (occurrence: None)
  Receive Date: 20120511
  Receipt Date: 20120507
  Transmission Date: 20120825
  Serious: Yes (Other)
  Sender: FDA-Public Use
  Company Number: MX-BAXTER-2012BAX005064

PATIENT
  Age: 20 Year
  Sex: Female

DRUGS (4)
  1. PREDNISONE TAB [Suspect]
     Indication: GLOMERULONEPHRITIS
  2. CYCLOPHOSPHAMIDE [Suspect]
     Dosage: 1.4 GR/M^2
     Dates: start: 20030111
  3. CYCLOPHOSPHAMIDE [Suspect]
     Dosage: 1.4 GR/M^2
     Dates: start: 20021211
  4. CYCLOPHOSPHAMIDE [Suspect]
     Indication: GLOMERULONEPHRITIS
     Dosage: 1 GR/M^2
     Route: 042
     Dates: start: 20021111

REACTIONS (2)
  - MATERNAL EXPOSURE DURING PREGNANCY [None]
  - MATERNAL EXPOSURE BEFORE PREGNANCY [None]
